FAERS Safety Report 11842585 (Version 2)
Quarter: 2015Q4

REPORT INFORMATION
  Report Type: Spontaneous
  Country: US (occurrence: US)
  Receive Date: 20151216
  Receipt Date: 20151216
  Transmission Date: 20160305
  Serious: No
  Sender: FDA-Public Use
  Company Number: US-BAUSCH-BL-2015-021298

PATIENT
  Sex: Female

DRUGS (1)
  1. JUBLIA [Suspect]
     Active Substance: EFINACONAZOLE
     Indication: FUNGAL INFECTION
     Dosage: APPLY TOPICALLY TO AFFECTED AREA DAILY
     Route: 061
     Dates: start: 201508

REACTIONS (3)
  - Burning sensation [Not Recovered/Not Resolved]
  - Nail discolouration [Not Recovered/Not Resolved]
  - Ingrowing nail [Not Recovered/Not Resolved]

NARRATIVE: CASE EVENT DATE: 2015
